FAERS Safety Report 5828946-8 (Version None)
Quarter: 2008Q3

REPORT INFORMATION
  Report Type: 
  Country: None (occurrence: None)
  Receive Date: 20080731
  Receipt Date: 20080501
  Transmission Date: 20090109
  Serious: No
  Sender: FDA-Public Use
  Company Number: US-BAYER-200811758BCC

PATIENT
  Age: 81 Year
  Sex: Female
  Weight: 73 kg

DRUGS (4)
  1. ALEVE [Suspect]
     Indication: ARTHRALGIA
     Dosage: TOTAL DAILY DOSE: 660 MG  UNIT DOSE: 220 MG
     Route: 048
  2. CALCIUM SUPPLEMENT [Concomitant]
     Route: 048
  3. CENTRUM SILVER [Concomitant]
     Route: 048
  4. GLUCOSAMINE CHONDROITIN [Concomitant]
     Route: 048

REACTIONS (1)
  - ARTHRALGIA [None]
